FAERS Safety Report 4626260-X (Version None)
Quarter: 2005Q2

REPORT INFORMATION
  Report Type: 
  Country: None (occurrence: None)
  Receive Date: 20050404
  Receipt Date: 20050106
  Transmission Date: 20051028
  Serious: Yes (Hospitalization)
  Sender: FDA-Public Use
  Company Number: JP-ROCHE-391977

PATIENT
  Age: 60 Year
  Sex: Female

DRUGS (2)
  1. XELODA [Suspect]
     Indication: BREAST CANCER METASTATIC
     Dosage: 3 WEEKS ADMINISTRATION WITH 1 WEEK REST
     Route: 048
     Dates: start: 20040804, end: 20041012
  2. XELODA [Suspect]
     Dosage: 3 WEEKS ADMINISTRATION WITH 1 WEEK REST
     Route: 048
     Dates: start: 20041215, end: 20041228

REACTIONS (2)
  - HERPES ZOSTER [None]
  - PALMAR-PLANTAR ERYTHRODYSAESTHESIA SYNDROME [None]
